FAERS Safety Report 6474759-6 (Version None)
Quarter: 2009Q4

REPORT INFORMATION
  Report Type: 
  Country: None (occurrence: None)
  Receive Date: 20091204
  Receipt Date: 20090505
  Transmission Date: 20100525
  Serious: Yes (Hospitalization, Other)
  Sender: FDA-Public Use
  Company Number: US-ELI_LILLY_AND_COMPANY-US200902002158

PATIENT
  Sex: Female
  Weight: 39.002 kg

DRUGS (7)
  1. FORTEO [Suspect]
     Indication: OSTEOPOROSIS
     Dosage: 20 UG, DAILY (1/D)
     Dates: start: 20080101, end: 20080101
  2. FORTEO [Suspect]
     Dosage: 20 UG, DAILY (1/D)
     Dates: start: 20090201, end: 20090415
  3. LIPITOR [Concomitant]
  4. NEXIUM [Concomitant]
  5. ELAVIL [Concomitant]
  6. NORCO [Concomitant]
  7. VITAMINS [Concomitant]

REACTIONS (3)
  - MENINGITIS [None]
  - PNEUMONIA [None]
  - WEST NILE VIRAL INFECTION [None]
